FAERS Safety Report 5408233-2 (Version None)
Quarter: 2007Q3

REPORT INFORMATION
  Report Type: 
  Country: None (occurrence: None)
  Receive Date: 20070808
  Receipt Date: 20070806
  Transmission Date: 20080115
  Serious: Yes (Other)
  Sender: FDA-Public Use
  Company Number: CH-BRISTOL-MYERS SQUIBB COMPANY-13847132

PATIENT
  Age: 52 Year
  Sex: Male

DRUGS (9)
  1. ATAZANAVIR SULFATE [Suspect]
     Indication: HIV INFECTION
     Route: 048
     Dates: start: 20061102, end: 20070613
  2. AMLODIPINE [Suspect]
  3. TENOFOVIR [Suspect]
  4. LAMIVUDINE [Concomitant]
  5. EFAVIRENZ [Concomitant]
  6. IRBESARTAN [Concomitant]
  7. PRAVALOTIN [Concomitant]
  8. COVERSUM [Concomitant]
  9. NORVIR [Concomitant]

REACTIONS (1)
  - NEPHRITIS INTERSTITIAL [None]
